FAERS Safety Report 5268900-0 (Version None)
Quarter: 2007Q1

REPORT INFORMATION
  Report Type: 
  Country: None (occurrence: None)
  Receive Date: 20070319
  Receipt Date: 20070316
  Transmission Date: 20070707
  Serious: Yes (Death, Hospitalization)
  Sender: FDA-Public Use
  Company Number: FR-BRISTOL-MYERS SQUIBB COMPANY-13639927

PATIENT
  Age: 55 Year
  Sex: Female
  Weight: 82 kg

DRUGS (2)
  1. HYDREA [Suspect]
     Indication: MYELOPATHY
     Route: 048
     Dates: start: 20060913, end: 20061125
  2. ASPEGIC 1000 [Suspect]
     Indication: MYELOPATHY
     Route: 048
     Dates: start: 20060913, end: 20061125

REACTIONS (5)
  - ASCITES [None]
  - ASTHENIA [None]
  - CARDIAC FAILURE [None]
  - CARDIOGENIC SHOCK [None]
  - DYSPNOEA [None]
